FAERS Safety Report 19538631 (Version 1)
Quarter: 2021Q3

REPORT INFORMATION
  Report Type: Report from Study
  Country: None (occurrence: CA)
  Receive Date: 20210713
  Receipt Date: 20210713
  Transmission Date: 20211014
  Serious: Yes (Other)
  Sender: FDA-Public Use
  Company Number: CA-ABBVIE-21K-028-3731959-00

PATIENT
  Sex: Female

DRUGS (1)
  1. HUMIRA [Suspect]
     Active Substance: ADALIMUMAB
     Indication: CROHN^S DISEASE
     Route: 058
     Dates: start: 20101102

REACTIONS (8)
  - Weight decreased [Not Recovered/Not Resolved]
  - Abdominal pain [Unknown]
  - Pain [Unknown]
  - Diarrhoea [Recovering/Resolving]
  - Gastrointestinal sounds abnormal [Unknown]
  - Gastrointestinal obstruction [Not Recovered/Not Resolved]
  - Intestinal operation [Unknown]
  - Malabsorption [Not Recovered/Not Resolved]

NARRATIVE: CASE EVENT DATE: 2021
